FAERS Safety Report 8885260 (Version 2)
Quarter: 2013Q1

REPORT INFORMATION
  Report Type: Spontaneous
  Country: RU (occurrence: RU)
  Receive Date: 20121102
  Receipt Date: 20130117
  Transmission Date: 20140127
  Serious: Yes (Hospitalization, Other)
  Sender: FDA-Public Use
  Company Number: RU-009507513-1210RUS013491

PATIENT
  Age: 13 Year
  Sex: Male
  Weight: 46.5 kg

DRUGS (4)
  1. ISENTRESS [Suspect]
     Indication: HIV INFECTION
     Dosage: 300 MG DAILY
     Route: 048
     Dates: start: 20121019, end: 20121024
  2. PLAQUENIL [Concomitant]
     Dosage: UNK
     Dates: start: 20121012
  3. FRAXIPARINE [Concomitant]
     Dosage: UNK
     Dates: start: 20121005
  4. ORTOFEN [Concomitant]

REACTIONS (4)
  - Hepatotoxicity [Not Recovered/Not Resolved]
  - Chromaturia [Recovered/Resolved]
  - Rhabdomyolysis [Not Recovered/Not Resolved]
  - Vomiting [Recovered/Resolved]
